FAERS Safety Report 6806343-6 (Version None)
Quarter: 2010Q2

REPORT INFORMATION
  Report Type: 
  Country: None (occurrence: None)
  Receive Date: 20100629
  Receipt Date: 20080408
  Transmission Date: 20101027
  Serious: No
  Sender: FDA-Public Use
  Company Number: US-PFIZER INC-2008009639

PATIENT
  Sex: Male
  Weight: 101.15 kg

DRUGS (3)
  1. TIKOSYN [Suspect]
     Indication: ATRIAL FIBRILLATION
     Route: 048
     Dates: start: 20071220
  2. WARFARIN SODIUM [Concomitant]
  3. AMBIEN [Concomitant]

REACTIONS (2)
  - BLOOD URIC ACID INCREASED [None]
  - GOUT [None]
